FAERS Safety Report 13153411 (Version 1)
Quarter: 2017Q1

REPORT INFORMATION
  Report Type: Spontaneous
  Country: US (occurrence: US)
  Receive Date: 20170125
  Receipt Date: 20170125
  Transmission Date: 20170428
  Serious: Yes (Other)
  Sender: FDA-Public Use
  Company Number: None

PATIENT
  Age: 60 Year
  Sex: Female

DRUGS (1)
  1. COPAXONE [Suspect]
     Active Substance: GLATIRAMER ACETATE
     Dosage: 40MG )1ML) TIW SQ
     Route: 058
     Dates: start: 201611

REACTIONS (4)
  - Injection site mass [None]
  - Injection site erythema [None]
  - Injection site reaction [None]
  - Injection site pruritus [None]

NARRATIVE: CASE EVENT DATE: 201612
